FAERS Safety Report 13966102 (Version 1)
Quarter: 2017Q3

REPORT INFORMATION
  Report Type: Spontaneous
  Country: US (occurrence: US)
  Receive Date: 20170913
  Receipt Date: 20170913
  Transmission Date: 20171128
  Serious: Yes (Hospitalization, Other)
  Sender: FDA-Public Use
  Company Number: US-NOVOPROD-562785

PATIENT
  Age: 57 Year
  Sex: Female
  Weight: 83.9 kg

DRUGS (3)
  1. GABAPENTIN. [Concomitant]
     Active Substance: GABAPENTIN
     Indication: DIABETIC NEUROPATHY
     Dosage: UNK
     Route: 048
  2. LEVEMIR [Suspect]
     Active Substance: INSULIN DETEMIR
     Indication: TYPE 2 DIABETES MELLITUS
     Dosage: 48 U, QD
     Route: 058
     Dates: start: 2014
  3. NOVOLOG [Suspect]
     Active Substance: INSULIN ASPART
     Indication: TYPE 2 DIABETES MELLITUS
     Dosage: SLIDING SCALE
     Route: 058
     Dates: start: 2014

REACTIONS (12)
  - Peripheral artery aneurysm [Recovered/Resolved]
  - Leg amputation [Recovered/Resolved]
  - Glaucoma [Not Recovered/Not Resolved]
  - Scab [Recovered/Resolved]
  - Accidental underdose [Not Recovered/Not Resolved]
  - Respiratory arrest [Recovered/Resolved]
  - Osteomyelitis [Recovered/Resolved]
  - Gangrene [Recovered/Resolved]
  - Foot amputation [Recovered/Resolved]
  - Blood glucose increased [Recovered/Resolved]
  - Sepsis [Recovered/Resolved]
  - Glycosylated haemoglobin increased [Unknown]

NARRATIVE: CASE EVENT DATE: 2016
